FAERS Safety Report 6273795-2 (Version None)
Quarter: 2009Q3

REPORT INFORMATION
  Report Type: 
  Country: None (occurrence: None)
  Receive Date: 20090720
  Receipt Date: 20090708
  Transmission Date: 20100115
  Serious: Yes (Other)
  Sender: FDA-Public Use
  Company Number: B0583275A

PATIENT

DRUGS (1)
  1. ZIAGEN [Suspect]
     Indication: HIV INFECTION
     Route: 048

REACTIONS (1)
  - THROMBOCYTOPENIA [None]
